FAERS Safety Report 7686417-0 (Version None)
Quarter: 2011Q3

REPORT INFORMATION
  Report Type: 
  Country: None (occurrence: None)
  Receive Date: 20110816
  Receipt Date: 20110812
  Transmission Date: 20111222
  Serious: Yes (Other)
  Sender: FDA-Public Use
  Company Number: US-PFIZER INC-2011186336

PATIENT
  Sex: Female
  Weight: 59 kg

DRUGS (9)
  1. IMITREX [Concomitant]
     Indication: MIGRAINE
     Dosage: 100 MG, AS NEEDED
  2. LORTAB [Concomitant]
     Indication: PAIN
     Dosage: 7.5 MG, 3X/DAY
  3. AMBIEN [Concomitant]
     Indication: SLEEP DISORDER
     Dosage: 10 MG, AS NEEDED
  4. ACETYLSALICYLIC ACID [Concomitant]
     Indication: ARTHRITIS
     Dosage: 325 MG 2 TABLETS 2 OR 3 TIMES A DAY
     Route: 048
  5. TIZANIDINE [Concomitant]
     Indication: MUSCLE RELAXANT THERAPY
     Dosage: 4 MG, 3X/DAY
     Route: 048
  6. PROAIR HFA [Concomitant]
     Indication: ASTHMA
     Dosage: TWO PUFFS TWO TIMES A DAY
  7. LYRICA [Suspect]
     Indication: FIBROMYALGIA
     Dosage: 50 MG, DAILY
     Route: 048
     Dates: start: 20080101
  8. LIDODERM [Concomitant]
     Indication: PAIN
     Dosage: 5 %, 3X/DAY
     Route: 061
  9. LORTAB [Concomitant]
     Indication: SPINAL DISORDER

REACTIONS (7)
  - MEMORY IMPAIRMENT [None]
  - DIARRHOEA [None]
  - WEIGHT DECREASED [None]
  - SPINAL DISORDER [None]
  - INFLUENZA [None]
  - DECREASED APPETITE [None]
  - BEDRIDDEN [None]
